FAERS Safety Report 8317729-5 (Version None)
Quarter: 2012Q2

REPORT INFORMATION
  Report Type: 
  Country: None (occurrence: None)
  Receive Date: 20120427
  Receipt Date: 20120417
  Transmission Date: 20120825
  Serious: Yes (Hospitalization, Other)
  Sender: FDA-Public Use
  Company Number: US-ELI_LILLY_AND_COMPANY-US201106002668

PATIENT
  Sex: Female

DRUGS (3)
  1. FORTEO [Suspect]
     Indication: OSTEOPOROSIS
     Dosage: 20 UG, QD
     Route: 065
     Dates: start: 20110315
  2. FORTEO [Suspect]
     Dosage: 20 UG, QD
     Route: 065
  3. FORTEO [Suspect]
     Dosage: 20 UG, QD
     Route: 065
     Dates: start: 20110315

REACTIONS (8)
  - DIZZINESS [None]
  - DEHYDRATION [None]
  - GAIT DISTURBANCE [None]
  - BLOOD PRESSURE INCREASED [None]
  - KNEE ARTHROPLASTY [None]
  - BLOOD SODIUM DECREASED [None]
  - NAUSEA [None]
  - HEADACHE [None]
